FAERS Safety Report 5075493-X (Version None)
Quarter: 2006Q3

REPORT INFORMATION
  Report Type: 
  Country: None (occurrence: None)
  Receive Date: 20060809
  Receipt Date: 20060801
  Transmission Date: 20061208
  Serious: Yes (Hospitalization)
  Sender: FDA-Public Use
  Company Number: PHRM2006FR02249

PATIENT
  Age: 55 Year
  Sex: Female

DRUGS (12)
  1. PANTOPRAZOLE SODIUM [Suspect]
     Route: 048
     Dates: start: 20051212, end: 20060103
  2. STRUCTUM [Suspect]
     Route: 048
     Dates: end: 20060103
  3. CORDARONE [Concomitant]
     Dosage: 200 MG/DAY 5 DAY/WEEK
     Route: 048
  4. AVLOCARDYL [Concomitant]
     Dosage: 1 DF, QD
     Route: 048
  5. FUROSEMIDE [Concomitant]
     Dosage: 60 MG/DAY
     Route: 048
  6. ASPIRIN [Concomitant]
     Dosage: 160 MG, QD
     Route: 048
  7. ZESTRIL [Concomitant]
     Dosage: 5 MG, QD
     Route: 048
  8. LEVOTHYROXINE SODIUM [Concomitant]
     Dosage: 100 UG, QD
     Route: 048
  9. DIGOXIN [Concomitant]
     Dosage: 0.125 MG, QD
     Route: 048
  10. LESCOL [Suspect]
     Route: 048
     Dates: end: 20060103
  11. VOLTAREN [Suspect]
     Indication: ARTHRALGIA
     Route: 061
     Dates: start: 20051001, end: 20051227
  12. ACETAMINOPHEN [Suspect]
     Indication: ARTHRALGIA
     Dates: start: 20051001, end: 20051227

REACTIONS (25)
  - BLOOD CREATININE INCREASED [None]
  - C-REACTIVE PROTEIN INCREASED [None]
  - CHEILITIS [None]
  - CONJUNCTIVAL HYPERAEMIA [None]
  - CONJUNCTIVITIS [None]
  - DRUG INEFFECTIVE [None]
  - DRUG RASH WITH EOSINOPHILIA AND SYSTEMIC SYMPTOMS [None]
  - EOSINOPHILIA [None]
  - GAMMA-GLUTAMYLTRANSFERASE INCREASED [None]
  - GASTROENTERITIS [None]
  - HYPERSENSITIVITY [None]
  - INFLAMMATION [None]
  - LIP ULCERATION [None]
  - LYMPHADENITIS [None]
  - PHARYNGOLARYNGEAL PAIN [None]
  - PROTEINURIA [None]
  - PRURITUS [None]
  - PYREXIA [None]
  - RALES [None]
  - RASH ERYTHEMATOUS [None]
  - RASH MACULO-PAPULAR [None]
  - RED BLOOD CELL SEDIMENTATION RATE INCREASED [None]
  - RENAL FAILURE [None]
  - SKIN EXFOLIATION [None]
  - WHITE BLOOD CELL COUNT INCREASED [None]
